FAERS Safety Report 20124716 (Version 1)
Quarter: 2021Q4

REPORT INFORMATION
  Report Type: Spontaneous
  Country: GB (occurrence: GB)
  Receive Date: 20211129
  Receipt Date: 20211129
  Transmission Date: 20220303
  Serious: Yes (Death, Other)
  Sender: FDA-Public Use
  Company Number: GB-SA-2021SA392650

PATIENT
  Age: 65 Year
  Sex: Male

DRUGS (8)
  1. FLUDARABINE PHOSPHATE [Suspect]
     Active Substance: FLUDARABINE PHOSPHATE
     Indication: Bone marrow conditioning regimen
     Dosage: 30 MG/M2 ON DAYS -7 TO -3
     Route: 042
  2. FLUDARABINE PHOSPHATE [Suspect]
     Active Substance: FLUDARABINE PHOSPHATE
     Indication: Acute myeloid leukaemia
  3. ALEMTUZUMAB [Suspect]
     Active Substance: ALEMTUZUMAB
     Indication: Bone marrow conditioning regimen
     Dosage: UNK
     Route: 042
  4. ALEMTUZUMAB [Suspect]
     Active Substance: ALEMTUZUMAB
     Indication: Acute myeloid leukaemia
  5. MELPHALAN [Suspect]
     Active Substance: MELPHALAN
     Indication: Bone marrow conditioning regimen
     Dosage: 140 MG/M2 ON DAY -2
  6. MELPHALAN [Suspect]
     Active Substance: MELPHALAN
     Indication: Acute myeloid leukaemia
  7. CYCLOSPORINE [Suspect]
     Active Substance: CYCLOSPORINE
     Indication: Prophylaxis against graft versus host disease
     Dosage: FROM DAY -1
  8. ACYCLOVIR [Concomitant]
     Active Substance: ACYCLOVIR
     Indication: Antiviral prophylaxis
     Dosage: 200 MG, BID POSTENGRAFTMENT
     Route: 048

REACTIONS (4)
  - Post transplant lymphoproliferative disorder [Fatal]
  - Off label use [Fatal]
  - Muscular weakness [Fatal]
  - Pyrexia [Fatal]
